FAERS Safety Report 8019697-2 (Version None)
Quarter: 2012Q1

REPORT INFORMATION
  Report Type: 
  Country: None (occurrence: None)
  Receive Date: 20120103
  Receipt Date: 20111227
  Transmission Date: 20120608
  Serious: Yes (Other)
  Sender: FDA-Public Use
  Company Number: CA-GLAXOSMITHKLINE-A0959275A

PATIENT
  Age: 23 Year
  Sex: Male

DRUGS (1)
  1. MALARONE [Suspect]
     Indication: PROPHYLAXIS
     Route: 065

REACTIONS (3)
  - ABNORMAL DREAMS [None]
  - VISUAL FIELD DEFECT [None]
  - HALLUCINATION, VISUAL [None]
